FAERS Safety Report 7267109-9 (Version None)
Quarter: 2011Q1

REPORT INFORMATION
  Report Type: 
  Country: None (occurrence: None)
  Receive Date: 20110201
  Receipt Date: 20110125
  Transmission Date: 20110831
  Serious: Yes (Death, Life-Threatening, Other)
  Sender: FDA-Public Use
  Company Number: PHHY2010JP41324

PATIENT
  Age: 68 Year
  Sex: Male

DRUGS (3)
  1. BLOOD TRANSFUSION, AUXILIARY PRODUCTS [Concomitant]
  2. EXJADE [Suspect]
     Indication: MYELODYSPLASTIC SYNDROME
     Dosage: UNK
     Route: 048
  3. CHEMOTHERAPEUTICS NOS [Concomitant]
     Indication: MYELODYSPLASTIC SYNDROME

REACTIONS (7)
  - PYREXIA [None]
  - ACUTE MYOCARDIAL INFARCTION [None]
  - LUNG INFECTION [None]
  - ZYGOMYCOSIS [None]
  - EMBOLISM ARTERIAL [None]
  - CARDIAC ARREST [None]
  - PNEUMONIA [None]
